FAERS Safety Report 9525808 (Version 1)
Quarter: 2013Q1

REPORT INFORMATION
  Report Type: Spontaneous
  Country: US (occurrence: None)
  Receive Date: 20130314
  Receipt Date: 20130314
  Transmission Date: 20140127
  Serious: No
  Sender: FDA-Public Use
  Company Number: 1302USA004150

PATIENT
  Sex: Female

DRUGS (5)
  1. VICTRELIS (BOCEPREVIR) CAPSULE [Suspect]
     Indication: HEPATITIS C
     Dosage: UNK, ORAL
     Route: 048
     Dates: start: 20130111
  2. RIBAVIRIN (RIBAVIRIN) CAPSULE [Suspect]
     Indication: HEPATITIS C
     Dosage: UNK, ORAL
     Route: 048
     Dates: start: 20121214
  3. PEGASYS (PEGINTERFERON ALFA-2A) [Suspect]
     Indication: HEPATITIS C
     Dosage: UNK
     Dates: start: 20121214
  4. INSULIN (INSULIN) [Concomitant]
  5. METFORMIN (METFORMIN) [Concomitant]

REACTIONS (9)
  - Contusion [None]
  - Nausea [None]
  - Platelet count decreased [None]
  - Headache [None]
  - Arthralgia [None]
  - Myalgia [None]
  - Asthenia [None]
  - Dysgeusia [None]
  - Thrombocytopenia [None]
